FAERS Safety Report 6124196-9 (Version None)
Quarter: 2009Q1

REPORT INFORMATION
  Report Type: 
  Country: None (occurrence: None)
  Receive Date: 20090317
  Receipt Date: 20090310
  Transmission Date: 20090719
  Serious: Yes (Death, Hospitalization, Other)
  Sender: FDA-Public Use
  Company Number: 2009SP003826

PATIENT
  Age: 62 Year
  Sex: Female

DRUGS (2)
  1. PEG-INTRON [Suspect]
     Indication: HEPATITIS C
     Dosage: 120 MCG;QW;
     Dates: start: 20080623
  2. REBETOL [Suspect]
     Indication: HEPATITIS C
     Dosage: 400 MG; BID
     Dates: start: 20080623

REACTIONS (9)
  - ACUTE RESPIRATORY DISTRESS SYNDROME [None]
  - HEPATIC CIRRHOSIS [None]
  - HERPES SIMPLEX [None]
  - ODYNOPHAGIA [None]
  - OESOPHAGEAL ULCER [None]
  - ORGAN FAILURE [None]
  - PLATELET COUNT DECREASED [None]
  - PNEUMONIA [None]
  - STAPHYLOCOCCAL SEPSIS [None]
